FAERS Safety Report 7539869-0 (Version None)
Quarter: 2011Q2

REPORT INFORMATION
  Report Type: 
  Country: None (occurrence: None)
  Receive Date: 20110610
  Receipt Date: 20110606
  Transmission Date: 20111010
  Serious: Yes (Other)
  Sender: FDA-Public Use
  Company Number: US-SANOFI-AVENTIS-2011SA036176

PATIENT

DRUGS (1)
  1. MULTAQ [Suspect]
     Route: 048

REACTIONS (2)
  - UNEVALUABLE EVENT [None]
  - ATRIAL FIBRILLATION [None]
